FAERS Safety Report 7056187-8 (Version None)
Quarter: 2010Q4

REPORT INFORMATION
  Report Type: 
  Country: None (occurrence: None)
  Receive Date: 20101021
  Receipt Date: 20101018
  Transmission Date: 20110411
  Serious: Yes (Death, Hospitalization, Other)
  Sender: FDA-Public Use
  Company Number: US-TEVA-251997USA

PATIENT
  Sex: Female

DRUGS (20)
  1. CLOZAPINE [Suspect]
     Dosage: QHS
     Route: 048
  2. PARACETAMOL [Concomitant]
     Dosage: Q 6 HR PRN
  3. VALPROATE SEMISODIUM [Concomitant]
     Dosage: QAM
  4. VALPROATE SEMISODIUM [Concomitant]
     Dosage: QHS
  5. VALPROATE SEMISODIUM [Concomitant]
     Dosage: QAM
  6. DOCUSATE SODIUM [Concomitant]
  7. FUROSEMIDE [Concomitant]
  8. GLIBENCLAMIDE [Concomitant]
  9. HALOPERIDOL [Concomitant]
  10. LORAZEPAM [Concomitant]
  11. LORAZEPAM [Concomitant]
     Dosage: PRN
     Route: 030
  12. LOVASTATIN [Concomitant]
  13. METFORMIN [Concomitant]
  14. METOPROLOL TARTRATE [Concomitant]
  15. MAGNESIUM HYDROXIDE [Concomitant]
     Dosage: PRN
  16. NICOTINE POLACRILEX [Concomitant]
     Dosage: GUM Q 2HR PRN
  17. POTASSIUM CHLORIDE [Concomitant]
  18. SALBUTAMOL [Concomitant]
  19. VITAMINS [Concomitant]
  20. SERTRALINE HYDROCHLORIDE [Concomitant]

REACTIONS (1)
  - HYPOXIC-ISCHAEMIC ENCEPHALOPATHY [None]
